FAERS Safety Report 15892872 (Version 1)
Quarter: 2019Q1

REPORT INFORMATION
  Report Type: Report from Study
  Country: US (occurrence: US)
  Receive Date: 20190130
  Receipt Date: 20190130
  Transmission Date: 20190417
  Serious: No
  Sender: FDA-Public Use
  Company Number: US-EXELIXIS-CABO-18016744

PATIENT
  Age: 76 Year
  Sex: Male

DRUGS (1)
  1. CABOMETYX [Suspect]
     Active Substance: CABOZANTINIB S-MALATE
     Indication: BRONCHIAL CARCINOMA
     Dosage: 20 MG, UNK
     Dates: start: 20181004, end: 20181027

REACTIONS (6)
  - Fatigue [Unknown]
  - Off label use [Unknown]
  - Productive cough [Unknown]
  - Decreased appetite [Unknown]
  - Dyspnoea [Unknown]
  - Oral discomfort [Unknown]

NARRATIVE: CASE EVENT DATE: 201810
